FAERS Safety Report 13863403 (Version 1)
Quarter: 2017Q3

REPORT INFORMATION
  Report Type: Spontaneous
  Country: US (occurrence: US)
  Receive Date: 20170814
  Receipt Date: 20170814
  Transmission Date: 20171127
  Serious: Yes (Other)
  Sender: FDA-Public Use
  Company Number: US-PFIZER INC-2017344316

PATIENT
  Age: 44 Year
  Sex: Male
  Weight: 73 kg

DRUGS (1)
  1. VIAGRA [Suspect]
     Active Substance: SILDENAFIL CITRATE
     Dosage: UNK
     Dates: start: 20170805

REACTIONS (5)
  - Painful erection [Unknown]
  - Ejaculation failure [Unknown]
  - Intentional product misuse [Unknown]
  - Erection increased [Unknown]
  - Penis disorder [Unknown]
